FAERS Safety Report 7553683-1 (Version None)
Quarter: 2011Q2

REPORT INFORMATION
  Report Type: 
  Country: None (occurrence: None)
  Receive Date: 20110614
  Receipt Date: 20110614
  Transmission Date: 20111010
  Serious: No
  Sender: FDA-Public Use
  Company Number: None

PATIENT
  Sex: Male
  Weight: 90.7194 kg

DRUGS (2)
  1. MYFORTIC [Suspect]
     Indication: RENAL TRANSPLANT
     Dosage: 360 MG TWICE A DAY
     Dates: start: 20110101, end: 20110515
  2. CYCLOSPORINE [Suspect]
     Indication: RENAL TRANSPLANT
     Dosage: 100 MG DAILY
     Dates: start: 20070101, end: 20110515

REACTIONS (7)
  - MUSCLE SPASMS [None]
  - FATIGUE [None]
  - TREMOR [None]
  - MOOD ALTERED [None]
  - CONTUSION [None]
  - HYPOAESTHESIA [None]
  - GINGIVAL HYPERTROPHY [None]
